FAERS Safety Report 9106648 (Version 2)
Quarter: 2013Q2

REPORT INFORMATION
  Report Type: Report from Study
  Country: GB (occurrence: GB)
  Receive Date: 20130221
  Receipt Date: 20130501
  Transmission Date: 20140414
  Serious: Yes (Death, Life-Threatening, Hospitalization)
  Sender: FDA-Public Use
  Company Number: GB-BRISTOL-MYERS SQUIBB COMPANY-16388449

PATIENT
  Age: 63 Year
  Sex: Male
  Weight: 88.9 kg

DRUGS (14)
  1. IPILIMUMAB [Suspect]
     Indication: PROSTATE CANCER
     Dosage: 907MG; 930 MG TOTAL DOSE
     Route: 042
     Dates: start: 20100915, end: 20101006
  2. ABIRATERONE ACETATE [Concomitant]
     Dates: start: 20110629, end: 20110713
  3. DEXAMETHASONE [Concomitant]
     Dates: start: 20110624
  4. ZOLADEX [Concomitant]
     Indication: PROSTATE CANCER
     Dosage: DOSE:10.8MG, 3/12
     Route: 058
     Dates: start: 2004
  5. TRAMADOL [Concomitant]
     Indication: PAIN
     Route: 048
     Dates: start: 20100529
  6. DICLOFENAC [Concomitant]
     Indication: PAIN
     Route: 048
     Dates: start: 20110617
  7. PARACETAMOL [Concomitant]
     Indication: PAIN
     Route: 048
     Dates: start: 201008
  8. MATRIFEN [Concomitant]
     Indication: PAIN
     Dosage: MATRIFEN PATCH,50MCG/HR,TOP
     Dates: start: 201106
  9. AMLODIPINE [Concomitant]
     Indication: HYPERTENSION
     Route: 048
     Dates: start: 2002
  10. OMEPRAZOLE [Concomitant]
     Indication: PROPHYLAXIS AGAINST GASTROINTESTINAL ULCER
     Route: 048
     Dates: start: 200907
  11. AMITRIPTYLINE [Concomitant]
     Indication: PAIN
     Route: 048
     Dates: start: 2011
  12. METOCLOPRAMIDE [Concomitant]
     Indication: NAUSEA
     Route: 048
     Dates: start: 201009
  13. MOVICOL [Concomitant]
     Indication: CONSTIPATION
     Dosage: 1DF=1-2 SACHETS
     Route: 048
  14. MOVELAT [Concomitant]
     Indication: PAIN
     Dosage: TOPICAL GEL
     Route: 061

REACTIONS (3)
  - Malignant neoplasm progression [Fatal]
  - Peritonitis [Fatal]
  - Intestinal perforation [Fatal]
